FAERS Safety Report 5165934-1 (Version None)
Quarter: 2006Q4

REPORT INFORMATION
  Report Type: 
  Country: None (occurrence: None)
  Receive Date: 20061206
  Receipt Date: 19990201
  Transmission Date: 20070319
  Serious: Yes (Hospitalization)
  Sender: FDA-Public Use
  Company Number: FR-BOEHRINGER INGELHEIM PHARMACEUTICALS, INC.-1999-FF-SP151

PATIENT
  Sex: Female

DRUGS (6)
  1. VIRAMUNE [Suspect]
     Indication: HIV INFECTION
     Route: 048
     Dates: start: 19991015, end: 19991029
  2. VIRAMUNE [Suspect]
     Route: 048
     Dates: start: 19991030, end: 19991110
  3. VIDEX [Concomitant]
     Indication: HIV INFECTION
     Route: 048
     Dates: start: 19981015, end: 19981110
  4. ZERIT [Concomitant]
     Indication: HIV INFECTION
     Route: 048
     Dates: start: 19981015, end: 19981110
  5. EFFERALGAN [Concomitant]
     Indication: INFLUENZA LIKE ILLNESS
     Route: 030
     Dates: start: 19981102
  6. PRO-DAFALGAN [Concomitant]
     Indication: INFLUENZA LIKE ILLNESS
     Route: 042
     Dates: start: 19981111

REACTIONS (5)
  - ALANINE AMINOTRANSFERASE INCREASED [None]
  - EPSTEIN-BARR VIRUS INFECTION [None]
  - INFLUENZA LIKE ILLNESS [None]
  - PRURITUS [None]
  - URTICARIA [None]
